FAERS Safety Report 20848000 (Version 2)
Quarter: 2022Q2

REPORT INFORMATION
  Report Type: Report from Study
  Country: US (occurrence: None)
  Receive Date: 20220519
  Receipt Date: 20220609
  Transmission Date: 20220720
  Serious: Yes (Hospitalization)
  Sender: FDA-Public Use
  Company Number: US-ROCHE-3095590

PATIENT
  Age: 85 Year
  Sex: Male
  Weight: 79.9 kg

DRUGS (3)
  1. ATEZOLIZUMAB [Suspect]
     Active Substance: ATEZOLIZUMAB
     Indication: Bladder cancer
     Dosage: ON 13/APR/2021 , LAST ADMINISTERED DATE PRIOR TO AE, ON DAY 1
     Route: 042
     Dates: start: 20210208
  2. FLUOROURACIL [Suspect]
     Active Substance: FLUOROURACIL
     Indication: Bladder cancer
     Dosage: ON  07/MAR/2021, LAST ADMINISTRATION PRIOR TO AE AND IT GIVEN ON SAME DAYS AS DOSES 1-5 AND 16-20 OF
     Route: 042
     Dates: start: 20210208
  3. MITOMYCIN C [Suspect]
     Active Substance: MITOMYCIN
     Indication: Bladder cancer
     Dosage: ON  08/FEB/2021 LAST DOSE ADMINISTRATED DATE PRIOR TO AE AND IV GIVEN ON SAME DAY AS DOSE 1 OF RT
     Route: 042
     Dates: start: 20210208

REACTIONS (3)
  - Hyperglycaemia [Recovered/Resolved]
  - Pancreatitis [Recovered/Resolved]
  - Cholecystitis [Recovered/Resolved]

NARRATIVE: CASE EVENT DATE: 20210428
